FAERS Safety Report 25528656 (Version 1)
Quarter: 2025Q3

REPORT INFORMATION
  Report Type: Spontaneous
  Country: US (occurrence: US)
  Receive Date: 20250708
  Receipt Date: 20250708
  Transmission Date: 20251021
  Serious: Yes (Life-Threatening, Hospitalization)
  Sender: MYLAN
  Company Number: US-MYLANLABS-2025M1055614

PATIENT
  Sex: Female

DRUGS (16)
  1. BIVALIRUDIN [Suspect]
     Active Substance: BIVALIRUDIN
     Indication: Anticoagulant therapy
     Dosage: 0.15 MILLIGRAM/KILOGRAM, QH
  2. BIVALIRUDIN [Suspect]
     Active Substance: BIVALIRUDIN
     Dosage: 0.15 MILLIGRAM/KILOGRAM, QH
  3. BIVALIRUDIN [Suspect]
     Active Substance: BIVALIRUDIN
     Dosage: 0.15 MILLIGRAM/KILOGRAM, QH
     Route: 065
  4. BIVALIRUDIN [Suspect]
     Active Substance: BIVALIRUDIN
     Dosage: 0.15 MILLIGRAM/KILOGRAM, QH
     Route: 065
  5. BIVALIRUDIN [Suspect]
     Active Substance: BIVALIRUDIN
     Dosage: 0.4 MILLIGRAM/KILOGRAM, QH
  6. BIVALIRUDIN [Suspect]
     Active Substance: BIVALIRUDIN
     Dosage: 0.4 MILLIGRAM/KILOGRAM, QH
  7. BIVALIRUDIN [Suspect]
     Active Substance: BIVALIRUDIN
     Dosage: 0.4 MILLIGRAM/KILOGRAM, QH
     Route: 065
  8. BIVALIRUDIN [Suspect]
     Active Substance: BIVALIRUDIN
     Dosage: 0.4 MILLIGRAM/KILOGRAM, QH
     Route: 065
  9. BIVALIRUDIN [Suspect]
     Active Substance: BIVALIRUDIN
  10. BIVALIRUDIN [Suspect]
     Active Substance: BIVALIRUDIN
     Route: 065
  11. BIVALIRUDIN [Suspect]
     Active Substance: BIVALIRUDIN
  12. BIVALIRUDIN [Suspect]
     Active Substance: BIVALIRUDIN
     Route: 065
  13. HEPARIN [Concomitant]
     Active Substance: HEPARIN SODIUM
     Indication: Anticoagulant therapy
  14. HEPARIN [Concomitant]
     Active Substance: HEPARIN SODIUM
     Route: 065
  15. HEPARIN [Concomitant]
     Active Substance: HEPARIN SODIUM
     Route: 065
  16. HEPARIN [Concomitant]
     Active Substance: HEPARIN SODIUM

REACTIONS (2)
  - Drug resistance [Unknown]
  - Off label use [Unknown]
